FAERS Safety Report 21346032 (Version 1)
Quarter: 2022Q3

REPORT INFORMATION
  Report Type: Report from Study
  Country: US (occurrence: US)
  Receive Date: 20220916
  Receipt Date: 20220916
  Transmission Date: 20221026
  Serious: Yes (Other)
  Sender: FDA-Public Use
  Company Number: US-JAZZ-2022-US-028629

PATIENT
  Sex: Female

DRUGS (8)
  1. XYWAV [Suspect]
     Active Substance: CALCIUM OXYBATE\MAGNESIUM OXYBATE\POTASSIUM OXYBATE\SODIUM OXYBATE
     Indication: Narcolepsy
     Dosage: UNK
  2. XYWAV [Suspect]
     Active Substance: CALCIUM OXYBATE\MAGNESIUM OXYBATE\POTASSIUM OXYBATE\SODIUM OXYBATE
     Indication: Cataplexy
  3. XYWAV [Suspect]
     Active Substance: CALCIUM OXYBATE\MAGNESIUM OXYBATE\POTASSIUM OXYBATE\SODIUM OXYBATE
     Indication: Somnolence
  4. SPIRIVA RESPIMAT [Concomitant]
     Active Substance: TIOTROPIUM BROMIDE
     Indication: Product used for unknown indication
     Dosage: UNK
     Dates: start: 20201216
  5. AMPHETAMINE [Concomitant]
     Active Substance: AMPHETAMINE
     Indication: Product used for unknown indication
     Dosage: 20 MILLIGRAM, BID, CAPSULE ER
     Route: 048
  6. AMPHETAMINE [Concomitant]
     Active Substance: AMPHETAMINE
     Dosage: 10 MILLIGRAM, BID, TABLET
     Route: 048
  7. SYMBICORT [Concomitant]
     Active Substance: BUDESONIDE\FORMOTEROL FUMARATE DIHYDRATE
     Indication: Product used for unknown indication
  8. GAS-X [Concomitant]
     Active Substance: DIMETHICONE
     Indication: Product used for unknown indication

REACTIONS (3)
  - Nephrolithiasis [Unknown]
  - Obstructive sleep apnoea syndrome [Unknown]
  - Adjustment disorder with depressed mood [Unknown]
